FAERS Safety Report 5708603-9 (Version None)
Quarter: 2008Q2

REPORT INFORMATION
  Report Type: 
  Country: None (occurrence: None)
  Receive Date: 20080417
  Receipt Date: 20080409
  Transmission Date: 20081010
  Serious: Yes (Disabling, Other)
  Sender: FDA-Public Use
  Company Number: FR-ABBOTT-08P-056-0444860-00

PATIENT
  Sex: Male

DRUGS (2)
  1. MONOZECLAR [Suspect]
     Indication: BRONCHITIS
     Route: 048
     Dates: start: 20080201, end: 20080318
  2. MONOZECLAR [Suspect]
     Indication: SINUSITIS

REACTIONS (11)
  - ACUTE SINUSITIS [None]
  - AGEUSIA [None]
  - BALANCE DISORDER [None]
  - BRONCHIAL OBSTRUCTION [None]
  - DRUG INEFFECTIVE [None]
  - EYE DISCHARGE [None]
  - HYPOACUSIS [None]
  - IMMUNODEFICIENCY [None]
  - LYMPHOMA [None]
  - OTITIS MEDIA [None]
  - SINUS DISORDER [None]
